FAERS Safety Report 5070696-2 (Version None)
Quarter: 2006Q3

REPORT INFORMATION
  Report Type: 
  Country: None (occurrence: None)
  Receive Date: 20060804
  Receipt Date: 20050930
  Transmission Date: 20061208
  Serious: No
  Sender: FDA-Public Use
  Company Number: US-GLAXOSMITHKLINE-A0576502A

PATIENT
  Age: 40 Year
  Sex: Male

DRUGS (1)
  1. NICORETTE [Suspect]
     Dates: end: 20050923

REACTIONS (4)
  - ASTHENIA [None]
  - DIZZINESS [None]
  - HEART RATE INCREASED [None]
  - NAUSEA [None]
